FAERS Safety Report 24292972 (Version 1)
Quarter: 2024Q3

REPORT INFORMATION
  Report Type: Spontaneous
  Country: US (occurrence: None)
  Receive Date: 20240906
  Receipt Date: 20240906
  Transmission Date: 20241017
  Serious: No
  Sender: DOMPE FARMACEUTICI
  Company Number: US-FARMAPROD-202308-202311-3330

PATIENT
  Sex: Female

DRUGS (5)
  1. OXERVATE [Suspect]
     Active Substance: CENEGERMIN-BKBJ
     Indication: Neurotrophic keratopathy
     Route: 047
     Dates: start: 20231030
  2. EYE MULTIVITAMIN [Concomitant]
     Dosage: 2148-113
  3. VITAMIN D3 [Concomitant]
     Active Substance: CHOLECALCIFEROL
  4. UNSPECIFIED INGREDIENT [Concomitant]
     Active Substance: UNSPECIFIED INGREDIENT
  5. BLINK TEARS [Concomitant]
     Active Substance: POLYETHYLENE GLYCOL 400

REACTIONS (1)
  - Intentional product misuse [Unknown]
